FAERS Safety Report 12889050 (Version 7)
Quarter: 2017Q1

REPORT INFORMATION
  Report Type: Report from Study
  Country: BR (occurrence: BR)
  Receive Date: 20161027
  Receipt Date: 20170330
  Transmission Date: 20170428
  Serious: Yes (Hospitalization, Other)
  Sender: FDA-Public Use
  Company Number: BR-ALEXION PHARMACEUTICALS INC-A201608136

PATIENT
  Age: 25 Year
  Sex: Female
  Weight: 59.5 kg

DRUGS (3)
  1. RITUXIMAB [Suspect]
     Active Substance: RITUXIMAB
     Indication: PROTEINURIA
     Dosage: UNK
     Route: 042
     Dates: start: 20161222, end: 20170122
  2. SOLIRIS [Suspect]
     Active Substance: ECULIZUMAB
     Dosage: 1200 MG, EVERY 15 DAYS
     Route: 042
     Dates: start: 20150923
  3. SOLIRIS [Suspect]
     Active Substance: ECULIZUMAB
     Indication: HAEMOLYTIC URAEMIC SYNDROME
     Dosage: 900 MG, UNK
     Route: 042
     Dates: start: 20150826, end: 20150916

REACTIONS (27)
  - Thrombotic microangiopathy [Not Recovered/Not Resolved]
  - Blood lactate dehydrogenase increased [Not Recovered/Not Resolved]
  - Swelling [Recovered/Resolved]
  - Blood potassium decreased [Recovered/Resolved]
  - Chills [Recovered/Resolved]
  - Malaise [Not Recovered/Not Resolved]
  - Nephrotic syndrome [Not Recovered/Not Resolved]
  - Chronic kidney disease [Unknown]
  - Oliguria [Recovered/Resolved]
  - Blood albumin decreased [Recovered/Resolved]
  - Alopecia [Recovered/Resolved]
  - Weight decreased [Recovered/Resolved]
  - Oedema [Recovered/Resolved]
  - Insomnia [Recovered/Resolved]
  - Cytomegalovirus infection [Not Recovered/Not Resolved]
  - Transplant rejection [Unknown]
  - Proteinuria [Not Recovered/Not Resolved]
  - Diarrhoea [Recovered/Resolved]
  - Haemolysis [Unknown]
  - Malaise [Not Recovered/Not Resolved]
  - Glomerulosclerosis [Not Recovered/Not Resolved]
  - Weight increased [Unknown]
  - Blood calcium decreased [Recovered/Resolved]
  - Laboratory test abnormal [Unknown]
  - Microangiopathic haemolytic anaemia [Not Recovered/Not Resolved]
  - Thrombocytopenia [Not Recovered/Not Resolved]
  - Haemodialysis [Recovered/Resolved]

NARRATIVE: CASE EVENT DATE: 201603
